FAERS Safety Report 8150098-2 (Version None)
Quarter: 2012Q1

REPORT INFORMATION
  Report Type: 
  Country: None (occurrence: None)
  Receive Date: 20120220
  Receipt Date: 20120209
  Transmission Date: 20120608
  Serious: Yes (Hospitalization)
  Sender: FDA-Public Use
  Company Number: DE-BIOGENIDEC-2012BI004897

PATIENT
  Age: 39 Year
  Sex: Female
  Weight: 43 kg

DRUGS (1)
  1. TYSABRI [Suspect]
     Indication: MULTIPLE SCLEROSIS
     Route: 042
     Dates: start: 20120118

REACTIONS (3)
  - MONOPLEGIA [None]
  - ASTHENIA [None]
  - HYPOAESTHESIA [None]
